FAERS Safety Report 6327831-5 (Version None)
Quarter: 2009Q3

REPORT INFORMATION
  Report Type: 
  Country: None (occurrence: None)
  Receive Date: 20090824
  Receipt Date: 20090620
  Transmission Date: 20100115
  Serious: Yes (Hospitalization)
  Sender: FDA-Public Use
  Company Number: 2005EU001274

PATIENT
  Age: 54 Year
  Sex: Male

DRUGS (22)
  1. TACROLIMUS [Suspect]
     Indication: RENAL TRANSPLANT
     Dosage: 3 MG, BID, ORAL; 1.5 MG, BID, ORAL
     Route: 048
     Dates: start: 20041018
  2. TACROLIMUS [Suspect]
     Indication: RENAL TRANSPLANT
     Dosage: 3 MG, BID, ORAL; 1.5 MG, BID, ORAL
     Route: 048
     Dates: start: 20060510
  3. DACLIZUMAB(DACLIZUMAB) [Suspect]
     Indication: RENAL TRANSPLANT
     Dosage: 2 MG/KG, TOTAL DOSE, IV NOS; 60 MG, OTHER, IV NOS
     Route: 042
     Dates: start: 20041018, end: 20041218
  4. DACLIZUMAB(DACLIZUMAB) [Suspect]
     Indication: RENAL TRANSPLANT
     Dosage: 2 MG/KG, TOTAL DOSE, IV NOS; 60 MG, OTHER, IV NOS
     Route: 042
     Dates: end: 20041218
  5. MYCOPHENOLATE MOFETIL [Suspect]
     Indication: RENAL TRANSPLANT
     Dosage: 1000 MG, BID, ORAL; 250 MG, OTHER, ORAL
     Route: 048
     Dates: start: 20041018, end: 20041018
  6. MYCOPHENOLATE MOFETIL [Suspect]
     Indication: RENAL TRANSPLANT
     Dosage: 1000 MG, BID, ORAL; 250 MG, OTHER, ORAL
     Route: 048
     Dates: start: 20051108
  7. CORTICOSTEROIDS() [Suspect]
     Indication: RENAL TRANSPLANT
     Dosage: 250 MG, UID/QD, IV NOS; 5 MG, UID/QD, ORAL
     Dates: start: 20041018, end: 20041019
  8. CORTICOSTEROIDS() [Suspect]
     Indication: RENAL TRANSPLANT
     Dosage: 250 MG, UID/QD, IV NOS; 5 MG, UID/QD, ORAL
     Dates: start: 20041020
  9. PREDNISONE TAB [Suspect]
     Indication: RENAL TRANSPLANT
     Dosage: 15 MG, ORAL
     Route: 048
     Dates: start: 20041019
  10. OMEPRAZOL [Concomitant]
  11. SEPTRA [Concomitant]
  12. ATENOLOL [Concomitant]
  13. COTRIMOXAZOLE RATIOPHARM (SULFAMETHOXAZOLE, TRIMETHOPRIM) [Concomitant]
  14. ATORVASTATIN [Concomitant]
  15. CIPRO [Concomitant]
  16. MEROPENEM (MEROPENEM) [Concomitant]
  17. VALGANCICLOVIR HCL [Concomitant]
  18. HEPARIN [Concomitant]
  19. CLAVULANIC ACID (CLAVULANIC ACID) [Concomitant]
  20. CEFAZOLINE (CEFAZOLIN SODIUM) [Concomitant]
  21. DARBEPOETIN ALFA (DARBEPOETIN ALFA) [Concomitant]
  22. LEVOFLOXACIN [Concomitant]

REACTIONS (8)
  - CULTURE URINE POSITIVE [None]
  - CYTOMEGALOVIRUS INFECTION [None]
  - ESCHERICHIA URINARY TRACT INFECTION [None]
  - HEMIPARESIS [None]
  - ISCHAEMIC CEREBRAL INFARCTION [None]
  - PYREXIA [None]
  - URETERAL NECROSIS [None]
  - URINARY FISTULA [None]
